FAERS Safety Report 21952071 (Version 6)
Quarter: 2023Q4

REPORT INFORMATION
  Report Type: Spontaneous
  Country: CA (occurrence: CA)
  Receive Date: 20230203
  Receipt Date: 20231026
  Transmission Date: 20240110
  Serious: Yes (Hospitalization, Other)
  Sender: FDA-Public Use
  Company Number: CA-PFIZER INC-202300049644

PATIENT
  Age: 82 Year
  Sex: Female
  Weight: 74 kg

DRUGS (6)
  1. RUXIENCE [Suspect]
     Active Substance: RITUXIMAB-PVVR
     Indication: Rheumatoid arthritis
     Dosage: 1000 MG  DAY 1 AND DAY 15
     Route: 042
     Dates: start: 20220712, end: 20220726
  2. RUXIENCE [Suspect]
     Active Substance: RITUXIMAB-PVVR
     Dosage: 1000 MG  DAY 1 AND DAY 15
     Route: 042
     Dates: start: 20220712
  3. RUXIENCE [Suspect]
     Active Substance: RITUXIMAB-PVVR
     Dosage: 1000 MG DAY 1 AND DAY 15
     Route: 042
     Dates: start: 20220726
  4. RUXIENCE [Suspect]
     Active Substance: RITUXIMAB-PVVR
     Dosage: 1000 MG DAY 1 AND DAY 15.
     Route: 042
     Dates: start: 20230210, end: 20230224
  5. RUXIENCE [Suspect]
     Active Substance: RITUXIMAB-PVVR
     Dosage: 1000 MG DAY 1 AND DAY 15.
     Route: 042
     Dates: start: 20230224
  6. RUXIENCE [Suspect]
     Active Substance: RITUXIMAB-PVVR
     Dosage: 1000 MG, DAY 1 (SUBSEQUENT TREATMENT) (DAY 1 AND DAY 15.)
     Route: 042
     Dates: start: 20230828

REACTIONS (8)
  - Pneumonia [Recovered/Resolved]
  - Cardiac disorder [Recovered/Resolved]
  - Oxygen saturation decreased [Recovered/Resolved]
  - Dyspnoea [Unknown]
  - Limb discomfort [Unknown]
  - Fall [Unknown]
  - Wound drainage [Unknown]
  - Skin laceration [Unknown]

NARRATIVE: CASE EVENT DATE: 20221001
